FAERS Safety Report 8456170-1 (Version None)
Quarter: 2012Q2

REPORT INFORMATION
  Report Type: 
  Country: None (occurrence: None)
  Receive Date: 20120323
  Receipt Date: 20111031
  Transmission Date: 20120825
  Serious: Yes (Other)
  Sender: FDA-Public Use
  Company Number: 163-21880-11082965

PATIENT
  Age: 78 Year
  Sex: Female
  Weight: 50.3493 kg

DRUGS (19)
  1. REVLIMID [Suspect]
     Indication: MULTIPLE MYELOMA
     Dosage: 25 MG, 21/7, PO
     Route: 048
     Dates: start: 20110318
  2. LISINOPRIL [Concomitant]
  3. VITAMIN D [Concomitant]
  4. COUMADIN [Concomitant]
  5. DIFLUCAN [Concomitant]
  6. PROMETHAZINE [Concomitant]
  7. PREDNISOLONE [Concomitant]
  8. DILTIAZEM [Concomitant]
  9. MECLIZINE [Concomitant]
  10. DECADRON [Concomitant]
  11. TRAMADOL HCL [Concomitant]
  12. DEXAMETHASONE [Concomitant]
  13. WARFARIN SODIUM [Concomitant]
  14. CARDIZEM [Concomitant]
  15. SULFAMETH/TMP (BACTRIM) [Concomitant]
  16. OFLOXACIN [Concomitant]
  17. ACYCLOVIR [Concomitant]
  18. ZOMETA [Concomitant]
  19. VANCOMYCIN [Concomitant]

REACTIONS (1)
  - CATARACT [None]
